FAERS Safety Report 12849383 (Version 1)
Quarter: 2016Q4

REPORT INFORMATION
  Report Type: Spontaneous
  Country: DE (occurrence: DE)
  Receive Date: 20161014
  Receipt Date: 20161014
  Transmission Date: 20170207
  Serious: Yes (Congenital Anomaly, Other)
  Sender: FDA-Public Use
  Company Number: DE-MYLANLABS-2016M1043380

PATIENT

DRUGS (2)
  1. QUETIAPINE MYLAN [Suspect]
     Active Substance: QUETIAPINE
     Indication: PERSONALITY DISORDER
     Dosage: UNK (700 [MG/D (BIS 600) ])
     Route: 064
     Dates: start: 20150530, end: 20160306
  2. FEMIBION 1 [Concomitant]
     Indication: PROPHYLAXIS OF NEURAL TUBE DEFECT
     Dosage: 0.8 MG, QD
     Route: 064
     Dates: start: 20150530, end: 20160306

REACTIONS (3)
  - Failure to thrive [Not Recovered/Not Resolved]
  - Hypoacusis [Not Recovered/Not Resolved]
  - Foetal exposure during pregnancy [Unknown]
